FAERS Safety Report 8777517 (Version 5)
Quarter: 2012Q4

REPORT INFORMATION
  Report Type: Report from Study
  Country: FR (occurrence: FR)
  Receive Date: 20120910
  Receipt Date: 20121220
  Transmission Date: 20130627
  Serious: Yes (Hospitalization)
  Sender: FDA-Public Use
  Company Number: FR-EISAI INC-E7389-02954-CLI-FR

PATIENT
  Age: 64 Year
  Sex: Female
  Weight: 63 kg

DRUGS (5)
  1. E7389 (BOLD) [Suspect]
     Indication: METASTATIC BREAST CANCER
     Dosage: UNKNOWN
     Route: 041
     Dates: start: 20120525, end: 20120803
  2. ATACAN [Concomitant]
     Indication: CARDIAC INSUFFICIENCY
     Route: 048
     Dates: start: 20090205
  3. METFORMIN [Concomitant]
     Indication: DIABETES
     Route: 048
     Dates: start: 20100527
  4. INEGY [Concomitant]
     Indication: CHOLESTEROL HIGH
     Route: 048
     Dates: start: 20100527
  5. MORPHINE [Concomitant]
     Indication: ABDOMINAL PAIN
     Route: 042
     Dates: start: 20120825

REACTIONS (1)
  - Intestinal obstruction [Not Recovered/Not Resolved]
